FAERS Safety Report 7651352-0 (Version None)
Quarter: 2011Q3

REPORT INFORMATION
  Report Type: 
  Country: None (occurrence: None)
  Receive Date: 20110802
  Receipt Date: 20110721
  Transmission Date: 20111222
  Serious: Yes (Hospitalization, Other)
  Sender: FDA-Public Use
  Company Number: PHEH2011US00515

PATIENT
  Sex: Male

DRUGS (1)
  1. AREDIA [Suspect]
     Dosage: 90 MG, QMO
     Dates: start: 20000201, end: 20011106

REACTIONS (15)
  - BONE PAIN [None]
  - ORAL CANDIDIASIS [None]
  - COUGH [None]
  - HEPATIC CYST [None]
  - INFLUENZA LIKE ILLNESS [None]
  - DECREASED APPETITE [None]
  - MALIGNANT MELANOMA [None]
  - PERIPHERAL ARTERY ANEURYSM [None]
  - PRESYNCOPE [None]
  - NEUTROPENIA [None]
  - MYALGIA [None]
  - CONVULSION [None]
  - FATIGUE [None]
  - PNEUMONIA [None]
  - TOOTH ABSCESS [None]
